FAERS Safety Report 7526545-3 (Version None)
Quarter: 2011Q2

REPORT INFORMATION
  Report Type: 
  Country: None (occurrence: None)
  Receive Date: 20110606
  Receipt Date: 20110523
  Transmission Date: 20111010
  Serious: Yes (Hospitalization, Other)
  Sender: FDA-Public Use
  Company Number: JP-UCBSA-009753

PATIENT
  Sex: Female

DRUGS (13)
  1. BREDININ [Suspect]
     Indication: RHEUMATOID ARTHRITIS
     Route: 048
     Dates: start: 20110304, end: 20110415
  2. REBAMIPIDE [Concomitant]
  3. INDOMETHACIN SODIUM [Concomitant]
     Dosage: ADEQUATE DOSE AS NEEDED
     Dates: start: 20090918, end: 20101231
  4. CIMZIA [Suspect]
     Route: 058
     Dates: start: 20091211
  5. LANSOPRAZOLE [Concomitant]
     Dates: start: 20100901
  6. CIMZIA [Suspect]
     Indication: RHEUMATOID ARTHRITIS
     Dosage: 275-08-003
     Route: 058
     Dates: start: 20090820, end: 20090101
  7. ATORVASTATIN CALCIUM [Concomitant]
     Dates: start: 20101210
  8. PREGABALIN [Concomitant]
     Dates: start: 20110304
  9. CIMZIA [Suspect]
     Route: 058
     Dates: end: 20110401
  10. BETAMETHASONE_D-CHLORPHENIRAMINE MALEATE [Concomitant]
     Dosage: 2 TABLETS
  11. DICLOFENAC SODIUM [Concomitant]
     Dates: start: 20090707
  12. KETOPROFEN [Concomitant]
     Dosage: ADEQUATE DOSE AS NEEDED
     Dates: start: 20090724, end: 20100819
  13. BETAMETHASONE_D-CHLORPHENIRAMINE MALEATE [Concomitant]
     Dosage: 2 TABLETS

REACTIONS (3)
  - PNEUMONIA BACTERIAL [None]
  - LUMBAR SPINAL STENOSIS [None]
  - INTERVERTEBRAL DISC PROTRUSION [None]
